FAERS Safety Report 24439258 (Version 1)
Quarter: 2024Q4

REPORT INFORMATION
  Report Type: Spontaneous
  Country: US (occurrence: US)
  Receive Date: 20241015
  Receipt Date: 20241015
  Transmission Date: 20250115
  Serious: No
  Sender: ABBVIE
  Company Number: US-ABBVIE-5956553

PATIENT
  Age: 21 Year
  Sex: Female
  Weight: 90.718 kg

DRUGS (9)
  1. BOTOX [Suspect]
     Active Substance: ONABOTULINUMTOXINA
     Indication: Migraine
     Dosage: TIME INTERVAL: AS NECESSARY: FREQUENCY 2-3 MONTHS
     Route: 030
     Dates: start: 20240717, end: 20240717
  2. BOTOX [Suspect]
     Active Substance: ONABOTULINUMTOXINA
     Indication: Migraine
     Dosage: TIME INTERVAL: AS NECESSARY: FREQUENCY 2-3 MONTHS
     Route: 030
     Dates: start: 20240920, end: 20240920
  3. ZYRTEC [Concomitant]
     Active Substance: CETIRIZINE HYDROCHLORIDE
     Indication: Hypersensitivity
  4. LEXAPRO [Concomitant]
     Active Substance: ESCITALOPRAM OXALATE
     Indication: Migraine
  5. UBRELVY [Concomitant]
     Active Substance: UBROGEPANT
     Indication: Migraine
  6. ZOFRAN [Concomitant]
     Active Substance: ONDANSETRON HYDROCHLORIDE
     Indication: Migraine
  7. AMERGE [Concomitant]
     Active Substance: NARATRIPTAN HYDROCHLORIDE
     Indication: Migraine
  8. TOPAMAX [Concomitant]
     Active Substance: TOPIRAMATE
     Indication: Migraine
  9. TIZANIDINE [Concomitant]
     Active Substance: TIZANIDINE
     Indication: Migraine

REACTIONS (3)
  - Vision blurred [Not Recovered/Not Resolved]
  - Dysphonia [Not Recovered/Not Resolved]
  - Diplopia [Not Recovered/Not Resolved]

NARRATIVE: CASE EVENT DATE: 20241001
